FAERS Safety Report 9006621 (Version 1)
Quarter: 2013Q1

REPORT INFORMATION
  Report Type: Spontaneous
  Country: AU (occurrence: AU)
  Receive Date: 20130110
  Receipt Date: 20130110
  Transmission Date: 20140127
  Serious: Yes (Other)
  Sender: FDA-Public Use
  Company Number: AU-ELI_LILLY_AND_COMPANY-AU201301001598

PATIENT
  Sex: Male

DRUGS (3)
  1. ZYPREXA [Suspect]
     Dosage: 15 MG, UNKNOWN
  2. ZYPREXA [Suspect]
     Dosage: 5 MG, UNKNOWN
     Dates: start: 20121204
  3. MULTIVITAMIN [Concomitant]

REACTIONS (5)
  - Rhabdomyolysis [Unknown]
  - Blood lactate dehydrogenase increased [Unknown]
  - Blood creatine increased [Unknown]
  - Alanine aminotransferase increased [Recovering/Resolving]
  - Aspartate aminotransferase increased [Recovering/Resolving]
